FAERS Safety Report 7404523-2 (Version None)
Quarter: 2011Q2

REPORT INFORMATION
  Report Type: 
  Country: None (occurrence: None)
  Receive Date: 20110410
  Receipt Date: 20110406
  Transmission Date: 20111010
  Serious: Yes (Hospitalization)
  Sender: FDA-Public Use
  Company Number: IT-BRISTOL-MYERS SQUIBB COMPANY-15642879

PATIENT
  Age: 61 Year
  Sex: Male

DRUGS (1)
  1. IPILIMUMAB [Suspect]
     Indication: MALIGNANT MELANOMA
     Dosage: ROUTE:EV,VIAL #:249899-249902,1437,221447,INTERRUPTED ON 25FEB11.
     Route: 042
     Dates: start: 20110119

REACTIONS (3)
  - ASTHENIA [None]
  - DYSPHAGIA [None]
  - DECREASED APPETITE [None]
